FAERS Safety Report 5237201-9 (Version None)
Quarter: 2007Q1

REPORT INFORMATION
  Report Type: 
  Country: None (occurrence: None)
  Receive Date: 20061208
  Receipt Date: 20050316
  Transmission Date: 20070707
  Serious: Yes (Other)
  Sender: FDA-Public Use
  Company Number: 2005UW04191

PATIENT
  Age: 83 Year
  Sex: Female
  Weight: 63.502 kg

DRUGS (8)
  1. CRESTOR [Suspect]
     Indication: BLOOD CHOLESTEROL INCREASED
     Dosage: 10 MG PO
     Route: 048
     Dates: start: 20050311, end: 20050314
  2. CRESTOR [Suspect]
     Indication: BLOOD CHOLESTEROL INCREASED
     Dosage: 10 MG PO
     Route: 048
     Dates: start: 20050316
  3. PLENDIL [Concomitant]
  4. ATENOLOL [Concomitant]
  5. ZESTRIL [Concomitant]
  6. LIPITOR [Suspect]
  7. FUROSEMIDE [Concomitant]
  8. POTASSIUM ACETATE [Concomitant]

REACTIONS (4)
  - BACK PAIN [None]
  - DIZZINESS [None]
  - FEELING ABNORMAL [None]
  - PAIN IN EXTREMITY [None]
